FAERS Safety Report 7379208-1 (Version None)
Quarter: 2011Q1

REPORT INFORMATION
  Report Type: 
  Country: None (occurrence: None)
  Receive Date: 20110328
  Receipt Date: 20101027
  Transmission Date: 20110831
  Serious: Yes (Other)
  Sender: FDA-Public Use
  Company Number: GB-AMGEN-DEUSP2010001691

PATIENT

DRUGS (7)
  1. PACLITAXEL [Suspect]
     Indication: BREAST CANCER
     Dosage: 225 MG/M2, Q2WK
  2. DARBEPOETIN ALFA [Suspect]
     Indication: PRODUCT USED FOR UNKNOWN INDICATION
     Dosage: 300 A?G, QWK
  3. VINORELBINE [Concomitant]
  4. EPIRUBICIN [Suspect]
     Indication: BREAST CANCER
     Dosage: 150 MG/M2, Q2WK
  5. NEUPOGEN [Suspect]
     Indication: CHEMOTHERAPY
     Dosage: 5 A?G/KG, AFTER CHEMO
     Route: 065
  6. CAPECITABINE [Suspect]
     Indication: BREAST CANCER
     Dosage: UNK UNK, BID
  7. TAMOXIFEN CITRATE [Concomitant]

REACTIONS (16)
  - PARAESTHESIA [None]
  - BREAST CANCER RECURRENT [None]
  - PALMAR-PLANTAR ERYTHRODYSAESTHESIA SYNDROME [None]
  - NAUSEA [None]
  - NEUTROPENIA [None]
  - HYPERSENSITIVITY [None]
  - LEUKOPENIA [None]
  - VOMITING [None]
  - HEADACHE [None]
  - DIARRHOEA [None]
  - THROMBOSIS [None]
  - FEBRILE NEUTROPENIA [None]
  - STOMATITIS [None]
  - NAIL DISORDER [None]
  - ARTHRALGIA [None]
  - IMPAIRED HEALING [None]
